FAERS Safety Report 21190998 (Version 2)
Quarter: 2022Q3

REPORT INFORMATION
  Report Type: Report from Study
  Country: IT (occurrence: IT)
  Receive Date: 20220809
  Receipt Date: 20220818
  Transmission Date: 20221026
  Serious: Yes (Hospitalization)
  Sender: FDA-Public Use
  Company Number: None

PATIENT
  Age: 76 Year
  Sex: Female

DRUGS (4)
  1. TAVOR (LORAZEPAM) [Suspect]
     Active Substance: LORAZEPAM
     Indication: Anxiety
     Dosage: 1 MG, 3X/DAY
     Route: 048
  2. GABAPENTIN [Concomitant]
     Active Substance: GABAPENTIN
     Dosage: 100 MG, 2X/DAY
     Route: 048
  3. MIRTAZAPINE [Concomitant]
     Active Substance: MIRTAZAPINE
     Indication: Major depression
     Dosage: 30 MG, DAILY
     Route: 048
  4. TRIAZOLAM [Concomitant]
     Active Substance: TRIAZOLAM
     Indication: Anxiety
     Dosage: 125 MCG
     Route: 048

REACTIONS (5)
  - Panic attack [Unknown]
  - Restlessness [Unknown]
  - Dyspnoea [Unknown]
  - Medication error [Unknown]
  - Intentional product misuse [Recovered/Resolved]
